FAERS Safety Report 19801691 (Version 1)
Quarter: 2021Q3

REPORT INFORMATION
  Report Type: Spontaneous
  Country: GB (occurrence: GB)
  Receive Date: 20210908
  Receipt Date: 20210908
  Transmission Date: 20211014
  Serious: Yes (Hospitalization, Other)
  Sender: FDA-Public Use
  Company Number: GB-TEVA-2021-GB-1949046

PATIENT
  Age: 41 Year
  Sex: Male
  Weight: 57 kg

DRUGS (1)
  1. MIRTAZAPINE. [Suspect]
     Active Substance: MIRTAZAPINE
     Indication: DEPRESSION SUICIDAL
     Route: 048
     Dates: start: 20180304, end: 20210624

REACTIONS (1)
  - Pancreatitis acute [Recovered/Resolved with Sequelae]

NARRATIVE: CASE EVENT DATE: 20210525
